FAERS Safety Report 6604574-1 (Version None)
Quarter: 2010Q1

REPORT INFORMATION
  Report Type: 
  Country: None (occurrence: None)
  Receive Date: 20100226
  Receipt Date: 20091203
  Transmission Date: 20100710
  Serious: No
  Sender: FDA-Public Use
  Company Number: A0833199A

PATIENT
  Age: 28 Year
  Sex: Female

DRUGS (2)
  1. LAMICTAL CD [Suspect]
     Indication: EPILEPSY
     Dosage: 575MG THREE TIMES PER DAY
     Route: 048
     Dates: start: 20040101
  2. DEPAKOTE [Concomitant]

REACTIONS (2)
  - DIPLOPIA [None]
  - DRUG INEFFECTIVE [None]
